FAERS Safety Report 16703013 (Version 1)
Quarter: 2019Q3

REPORT INFORMATION
  Report Type: Spontaneous
  Country: US (occurrence: US)
  Receive Date: 20190628
  Receipt Date: 20190628
  Transmission Date: 20191004
  Serious: Yes (Hospitalization)
  Sender: FDA-Public Use
  Company Number: None

PATIENT
  Age: 64 Year
  Sex: Female

DRUGS (11)
  1. SULFASLAZIN [Concomitant]
  2. OMEPRAZOLE. [Concomitant]
     Active Substance: OMEPRAZOLE
  3. TOPIRAMATE. [Concomitant]
     Active Substance: TOPIRAMATE
  4. ARMODAFINIL. [Concomitant]
     Active Substance: ARMODAFINIL
  5. LYRICA [Concomitant]
     Active Substance: PREGABALIN
  6. OXYOCDONE [Suspect]
     Active Substance: OXYCODONE
  7. ATORVASTATIN [Concomitant]
     Active Substance: ATORVASTATIN
  8. METOCLOPRAM [Concomitant]
     Active Substance: METOCLOPRAMIDE
  9. ACTEMRA [Suspect]
     Active Substance: TOCILIZUMAB
     Dosage: ?          OTHER DOSE:1 SYRINGE;?
     Route: 058
     Dates: start: 20181022
  10. FLUOXETINE [Concomitant]
     Active Substance: FLUOXETINE HYDROCHLORIDE
  11. FOLIC ACID. [Concomitant]
     Active Substance: FOLIC ACID

REACTIONS (1)
  - Hip surgery [None]

NARRATIVE: CASE EVENT DATE: 20190627
